FAERS Safety Report 5082389-6 (Version None)
Quarter: 2006Q3

REPORT INFORMATION
  Report Type: 
  Country: None (occurrence: None)
  Receive Date: 20060814
  Receipt Date: 20060619
  Transmission Date: 20061208
  Serious: Yes (Other)
  Sender: FDA-Public Use
  Company Number: 2006094769

PATIENT
  Age: 70 Year
  Sex: Female

DRUGS (1)
  1. BEXTRA [Suspect]
     Indication: DRUG USE FOR UNKNOWN INDICATION
     Dates: end: 20040801

REACTIONS (1)
  - STEVENS-JOHNSON SYNDROME [None]
